FAERS Safety Report 6840254-5 (Version None)
Quarter: 2010Q3

REPORT INFORMATION
  Report Type: 
  Country: None (occurrence: None)
  Receive Date: 20100714
  Receipt Date: 20100708
  Transmission Date: 20110219
  Serious: Yes (Life-Threatening, Hospitalization, Other)
  Sender: FDA-Public Use
  Company Number: PHHY2010JP39664

PATIENT
  Sex: Male
  Weight: 63 kg

DRUGS (13)
  1. AFINITOR [Suspect]
     Indication: METASTATIC RENAL CELL CARCINOMA
     Dosage: 10 MG/DAY
     Route: 048
     Dates: start: 20100514, end: 20100627
  2. OXYCONTIN [Concomitant]
     Indication: METASTATIC RENAL CELL CARCINOMA
     Dosage: 60 MG
     Route: 048
  3. GABAPENTIN [Concomitant]
     Indication: METASTATIC RENAL CELL CARCINOMA
     Dosage: 400 MG
     Route: 048
  4. ZOMETA [Concomitant]
     Indication: METASTASES TO BONE
     Dosage: 4MG
     Route: 042
     Dates: start: 20100507
  5. RISPERDAL [Concomitant]
     Indication: DELIRIUM
     Dosage: 0.5MG
     Route: 048
  6. CALONAL [Concomitant]
     Indication: METASTATIC RENAL CELL CARCINOMA
     Dosage: 400 MG
     Route: 048
  7. MAGMITT [Concomitant]
     Dosage: 1500 MG, UNK
     Route: 048
  8. OXINORM [Concomitant]
     Indication: METASTATIC RENAL CELL CARCINOMA
     Dosage: 2.5 MG
     Route: 048
  9. NOVAMIN [Concomitant]
     Dosage: 10 MG
     Route: 048
  10. EURAX [Concomitant]
     Indication: ECZEMA ASTEATOTIC
  11. HIRUDOID [Concomitant]
     Indication: ECZEMA ASTEATOTIC
     Dosage: UNK
     Route: 062
     Dates: start: 20100521
  12. MYSER [Concomitant]
  13. AZUNOL [Concomitant]
     Indication: STOMATITIS
     Dosage: UNK

REACTIONS (6)
  - ANAEMIA [None]
  - BLOOD CREATININE INCREASED [None]
  - GENERALISED OEDEMA [None]
  - INTERSTITIAL LUNG DISEASE [None]
  - MALAISE [None]
  - PYREXIA [None]
